FAERS Safety Report 7988987-1 (Version None)
Quarter: 2011Q4

REPORT INFORMATION
  Report Type: 
  Country: None (occurrence: None)
  Receive Date: 20111219
  Receipt Date: 20111207
  Transmission Date: 20120403
  Serious: Yes (Hospitalization)
  Sender: FDA-Public Use
  Company Number: PHEH2011US009795

PATIENT
  Sex: Female

DRUGS (10)
  1. FOLIC ACID [Concomitant]
  2. BUMETANIDE [Concomitant]
  3. PERCOCET [Concomitant]
     Indication: PAIN
     Dosage: 7.5 MG, UNK
  4. EXJADE [Suspect]
     Indication: HAEMOCHROMATOSIS
     Dosage: 1000 MG, QD
     Route: 048
     Dates: start: 20110201
  5. DILTIAZEM HCL [Concomitant]
  6. TOBRAMYCIN [Concomitant]
     Dosage: UNK UKN, UNK
  7. EXJADE [Suspect]
     Dosage: 500 MG, TID
  8. VITAMINS NOS [Concomitant]
  9. COUMADIN [Concomitant]
     Dosage: 7.5 MG
  10. NAPROSYN [Concomitant]
     Dosage: 500 MG

REACTIONS (7)
  - SWELLING [None]
  - BLOOD URIC ACID INCREASED [None]
  - GOUT [None]
  - EMOTIONAL DISORDER [None]
  - PRURITUS [None]
  - RASH GENERALISED [None]
  - HAEMOGLOBIN DECREASED [None]
